FAERS Safety Report 24563268 (Version 1)
Quarter: 2024Q4

REPORT INFORMATION
  Report Type: Spontaneous
  Country: US (occurrence: US)
  Receive Date: 20241030
  Receipt Date: 20241030
  Transmission Date: 20250114
  Serious: No
  Sender: APOTEX
  Company Number: US-APOTEX-2024AP016966

PATIENT
  Age: 77 Year
  Sex: Female

DRUGS (3)
  1. IMIQUIMOD [Suspect]
     Active Substance: IMIQUIMOD
     Indication: Paget^s disease of the vulva
     Dosage: ON MONDAY, WEDNESDAY, AND FRIDAY FOR 8 H TO THE ENTIRE VULVA EACH NIGHT)
     Route: 061
     Dates: start: 2022
  2. IMIQUIMOD [Suspect]
     Active Substance: IMIQUIMOD
     Dosage: ON MONDAY, WEDNESDAY, AND FRIDAY FOR 8 H TO THE ENTIRE VULVA EACH NIGHT)
     Route: 061
  3. SILVER SULFADIAZINE [Concomitant]
     Active Substance: SILVER SULFADIAZINE
     Indication: Paget^s disease of the vulva
     Dosage: UNK
     Route: 065

REACTIONS (4)
  - Discomfort [Recovering/Resolving]
  - Off label use [Unknown]
  - Skin abrasion [Recovering/Resolving]
  - Therapeutic product effect incomplete [Unknown]

NARRATIVE: CASE EVENT DATE: 20220101
